FAERS Safety Report 9648166 (Version 1)
Quarter: 2013Q4

REPORT INFORMATION
  Report Type: Spontaneous
  Country: US (occurrence: US)
  Receive Date: 20131028
  Receipt Date: 20131028
  Transmission Date: 20140711
  Serious: No
  Sender: FDA-Public Use
  Company Number: US-009507513-1310USA012260

PATIENT
  Age: 67 Year
  Sex: Female

DRUGS (2)
  1. DULERA [Suspect]
     Indication: CHRONIC OBSTRUCTIVE PULMONARY DISEASE
     Dosage: 2 PUFFS, BID, 2 YEARS AGO
     Route: 055
  2. PROAIR (ALBUTEROL SULFATE) [Concomitant]
     Dosage: 2 PUFFS, FOUR TIMES A DAY
     Route: 055

REACTIONS (3)
  - Dyspnoea [Recovering/Resolving]
  - Product container issue [Unknown]
  - Drug dose omission [Unknown]
